FAERS Safety Report 9031337 (Version 2)
Quarter: 2013Q1

REPORT INFORMATION
  Report Type: Report from Study
  Country: US (occurrence: US)
  Receive Date: 20130124
  Receipt Date: 20130130
  Transmission Date: 20140127
  Serious: No
  Sender: FDA-Public Use
  Company Number: US-VERTEX PHARMACEUTICALS INC.-2013-001042

PATIENT
  Age: 59 Year
  Sex: Male

DRUGS (5)
  1. VX-950 (TELAPREVIR) [Suspect]
     Indication: HEPATITIS C
     Dosage: 750 MG, TID
     Route: 048
  2. RIBAVIRIN [Suspect]
     Indication: HEPATITIS C
     Dosage: 200 MG, UNK
  3. PEGASYS [Suspect]
     Indication: HEPATITIS C
     Dosage: 180 ?G/M
  4. LISINOPRIL [Concomitant]
     Dosage: 2.5 MG, UNK
  5. VITAMIN C [Concomitant]
     Dosage: 100 MG, UNK

REACTIONS (3)
  - Headache [Unknown]
  - Back pain [Unknown]
  - Dyspepsia [Unknown]
